FAERS Safety Report 8182224 (Version 8)
Quarter: 2016Q4

REPORT INFORMATION
  Report Type: Report from Study
  Country: CA (occurrence: CA)
  Receive Date: 20111014
  Receipt Date: 20161216
  Transmission Date: 20170207
  Serious: Yes (Hospitalization, Other)
  Sender: FDA-Public Use
  Company Number: CA-ROCHE-796947

PATIENT
  Age: 66 Year
  Sex: Female
  Weight: 72.6 kg

DRUGS (26)
  1. SEPTRA DS [Concomitant]
     Active Substance: SULFAMETHOXAZOLE\TRIMETHOPRIM
     Dosage: DRUG NAME MENTIONED AS CEPTRA DS, THERAPY DATES ; FOR 2 YEARS
     Route: 065
  2. INSULIN [Concomitant]
     Active Substance: INSULIN NOS
  3. MEDROL [Concomitant]
     Active Substance: METHYLPREDNISOLONE
  4. MORPHINE [Concomitant]
     Active Substance: MORPHINE
     Indication: PAIN
  5. OXYCOCET [Concomitant]
     Active Substance: ACETAMINOPHEN\OXYCODONE HYDROCHLORIDE
     Indication: PAIN
  6. TECTA [Concomitant]
     Active Substance: PANTOPRAZOLE MAGNESIUM
     Route: 065
  7. ADALAT [Concomitant]
     Active Substance: NIFEDIPINE
     Indication: BLOOD PRESSURE MEASUREMENT
  8. VITAMIN D3-5 [Concomitant]
  9. CRESTOR [Concomitant]
     Active Substance: ROSUVASTATIN CALCIUM
  10. METHOTREXATE. [Concomitant]
     Active Substance: METHOTREXATE
     Route: 065
  11. METHYLPREDNISOLONE. [Concomitant]
     Active Substance: METHYLPREDNISOLONE
     Route: 042
     Dates: start: 20100729
  12. LOZIDE (CANADA) [Concomitant]
  13. HUMULIN NOS [Concomitant]
     Active Substance: INSULIN HUMAN
  14. RITUXAN [Suspect]
     Active Substance: RITUXIMAB
     Indication: RHEUMATOID ARTHRITIS
     Dosage: DAY 1, 15
     Route: 042
  15. ACTONEL [Suspect]
     Active Substance: RISEDRONATE SODIUM
     Indication: PRODUCT USED FOR UNKNOWN INDICATION
     Route: 065
  16. METRONIDAZOLE. [Concomitant]
     Active Substance: METRONIDAZOLE
     Indication: ANTIBIOTIC THERAPY
     Dosage: DOSE : 14 PILLS
     Route: 065
  17. DIPHENHYDRAMINE HYDROCHLORIDE. [Concomitant]
     Active Substance: DIPHENHYDRAMINE HYDROCHLORIDE
     Route: 048
  18. RITUXAN [Suspect]
     Active Substance: RITUXIMAB
     Route: 042
  19. AMOXICILLIN. [Suspect]
     Active Substance: AMOXICILLIN
     Indication: PRODUCT USED FOR UNKNOWN INDICATION
     Route: 065
  20. CALTRATE [Concomitant]
     Active Substance: CALCIUM CARBONATE
  21. FOLIC ACID. [Concomitant]
     Active Substance: FOLIC ACID
  22. ACETAMINOFEN [Concomitant]
     Active Substance: ACETAMINOPHEN
     Route: 048
  23. PROLIA [Concomitant]
     Active Substance: DENOSUMAB
  24. PREVACID [Concomitant]
     Active Substance: LANSOPRAZOLE
  25. COZAAR [Concomitant]
     Active Substance: LOSARTAN POTASSIUM
     Indication: BLOOD PRESSURE MEASUREMENT
  26. APO-BISOPROLOL [Concomitant]
     Active Substance: BISOPROLOL FUMARATE

REACTIONS (12)
  - Enteritis infectious [Recovering/Resolving]
  - Cardiac disorder [Not Recovered/Not Resolved]
  - Cystitis [Recovered/Resolved]
  - Musculoskeletal stiffness [Recovered/Resolved]
  - Fatigue [Not Recovered/Not Resolved]
  - Intestinal obstruction [Recovering/Resolving]
  - Infusion related reaction [Unknown]
  - Drug hypersensitivity [Not Recovered/Not Resolved]
  - Angina pectoris [Recovering/Resolving]
  - Joint swelling [Unknown]
  - Rheumatoid arthritis [Not Recovered/Not Resolved]
  - Knee operation [Unknown]

NARRATIVE: CASE EVENT DATE: 2011
